FAERS Safety Report 8606555-5 (Version None)
Quarter: 2012Q3

REPORT INFORMATION
  Report Type: 
  Country: None (occurrence: None)
  Receive Date: 20120820
  Receipt Date: 20120815
  Transmission Date: 20120928
  Serious: Yes (Other)
  Sender: FDA-Public Use
  Company Number: BR-PFIZER INC-2012200593

PATIENT
  Age: 79 Year
  Sex: Male

DRUGS (2)
  1. TOLTERODINE TARTRATE [Suspect]
     Indication: HYPERTONIC BLADDER
     Dosage: 4 MG, 1X/DAY
     Dates: start: 20060614
  2. CARDURA [Suspect]
     Dosage: 4 MG, 1X/DAY
     Dates: start: 19990501

REACTIONS (4)
  - OSTEOARTHRITIS [None]
  - GAIT DISTURBANCE [None]
  - JOINT SWELLING [None]
  - PAIN [None]
